FAERS Safety Report 12838312 (Version 2)
Quarter: 2017Q2

REPORT INFORMATION
  Report Type: Spontaneous
  Country: US (occurrence: US)
  Receive Date: 20161012
  Receipt Date: 20170417
  Transmission Date: 20170830
  Serious: No
  Sender: FDA-Public Use
  Company Number: US-MYLANLABS-2016M1040005

PATIENT
  Sex: Female

DRUGS (2)
  1. ESTRADIOL TRANSDERMAL SYSTEM [Suspect]
     Active Substance: ESTRADIOL
     Dosage: 1 DF, QD, CHANGE TW
     Route: 062
     Dates: start: 2016
  2. ESTRADIOL. [Suspect]
     Active Substance: ESTRADIOL
     Indication: PRODUCT USED FOR UNKNOWN INDICATION
     Dosage: .5 TO 1 DF, QD, CHANGE TW
     Route: 062
     Dates: start: 201501, end: 2016

REACTIONS (5)
  - Alopecia [Recovered/Resolved]
  - Wrong technique in product usage process [Recovered/Resolved]
  - Hair disorder [Recovered/Resolved]
  - Breast cyst [Unknown]
  - Thyroid cyst [Unknown]

NARRATIVE: CASE EVENT DATE: 2015
